FAERS Safety Report 17129621 (Version 1)
Quarter: 2019Q4

REPORT INFORMATION
  Report Type: Spontaneous
  Country: FR (occurrence: FR)
  Receive Date: 20191209
  Receipt Date: 20191209
  Transmission Date: 20200122
  Serious: Yes (Other)
  Sender: FDA-Public Use
  Company Number: FR-MYLANLABS-2019M1119670

PATIENT
  Age: 20 Year
  Sex: Female

DRUGS (1)
  1. PREDNISONE. [Suspect]
     Active Substance: PREDNISONE
     Indication: STILL^S DISEASE
     Dosage: 45 MILLIGRAM, QD (0.6 MG/KG OF BODY WEIGHT)

REACTIONS (4)
  - Cushing^s syndrome [Unknown]
  - Maternal exposure during pregnancy [Unknown]
  - Drug dependence [Unknown]
  - Drug ineffective [Unknown]
